FAERS Safety Report 6564617-0 (Version None)
Quarter: 2010Q1

REPORT INFORMATION
  Report Type: 
  Country: None (occurrence: None)
  Receive Date: 20100201
  Receipt Date: 20100120
  Transmission Date: 20100710
  Serious: Yes (Other)
  Sender: FDA-Public Use
  Company Number: PHHY2010US01989

PATIENT
  Sex: Male

DRUGS (6)
  1. STALEVO 100 [Suspect]
     Indication: PARKINSON'S DISEASE
     Dosage: UNK
     Dates: start: 20040817
  2. STALEVO 100 [Suspect]
     Dosage: 100 MG TWICE TO THREE TIMES A DAY
  3. LASIX [Concomitant]
  4. POTASSIUM [Concomitant]
  5. GLYBURIDE [Concomitant]
  6. ALLOPURINOL [Concomitant]

REACTIONS (5)
  - ANGER [None]
  - DIABETES MELLITUS [None]
  - DYSKINESIA [None]
  - EMOTIONAL DISORDER [None]
  - GAIT DISTURBANCE [None]
